FAERS Safety Report 4877850-0 (Version None)
Quarter: 2006Q1

REPORT INFORMATION
  Report Type: 
  Country: None (occurrence: None)
  Receive Date: 20060111
  Receipt Date: 20051230
  Transmission Date: 20060701
  Serious: Yes (Other)
  Sender: FDA-Public Use
  Company Number: DE-BRISTOL-MYERS SQUIBB COMPANY-13233440

PATIENT
  Age: 51 Year
  Sex: Male

DRUGS (4)
  1. STAVUDINE [Suspect]
  2. LAMIVUDINE [Suspect]
  3. TENOFOVIR [Suspect]
  4. LOPINAVIR + RITONAVIR [Suspect]
     Dosage: 400/100 MG

REACTIONS (1)
  - RENAL TUBULAR NECROSIS [None]
